FAERS Safety Report 24961279 (Version 1)
Quarter: 2025Q1

REPORT INFORMATION
  Report Type: Spontaneous
  Country: FR (occurrence: FR)
  Receive Date: 20250212
  Receipt Date: 20250212
  Transmission Date: 20250409
  Serious: Yes (Death, Hospitalization, Other)
  Sender: BIOCODEX
  Company Number: FR-BIOCODEX2-2025000112

PATIENT
  Age: 5 Year
  Sex: Female

DRUGS (3)
  1. STIRIPENTOL [Suspect]
     Active Substance: STIRIPENTOL
     Indication: Severe myoclonic epilepsy of infancy
     Route: 065
  2. CLOBAZAM [Concomitant]
     Active Substance: CLOBAZAM
     Indication: Severe myoclonic epilepsy of infancy
     Route: 065
  3. VALPROIC ACID [Concomitant]
     Active Substance: VALPROIC ACID
     Indication: Severe myoclonic epilepsy of infancy
     Route: 065

REACTIONS (7)
  - Clonic convulsion [Not Recovered/Not Resolved]
  - Multiple organ dysfunction syndrome [Fatal]
  - Pyrexia [Not Recovered/Not Resolved]
  - Septic shock [Fatal]
  - Epstein-Barr virus infection [Fatal]
  - Drug screen false positive [Unknown]
  - Laboratory test interference [Unknown]
